FAERS Safety Report 5989306-2 (Version None)
Quarter: 2008Q4

REPORT INFORMATION
  Report Type: 
  Country: None (occurrence: None)
  Receive Date: 20081205
  Receipt Date: 20081119
  Transmission Date: 20090506
  Serious: Yes (Other)
  Sender: FDA-Public Use
  Company Number: 8032190

PATIENT
  Age: 38 Year
  Sex: Male
  Weight: 70 kg

DRUGS (4)
  1. KEPPRA [Suspect]
     Indication: CONVULSION
     Dosage: 500 MG 2/D PO
     Route: 048
     Dates: start: 20080421
  2. KEPPRA [Suspect]
     Indication: HYPOXIC ENCEPHALOPATHY
     Dosage: 500 MG 2/D PO
     Route: 048
     Dates: start: 20080421
  3. VALPROATE SODIUM [Suspect]
     Indication: CONVULSION
     Dosage: 2500 MG PO
     Route: 048
     Dates: start: 20040701
  4. VALPROATE SODIUM [Suspect]
     Indication: HYPOXIC ENCEPHALOPATHY
     Dosage: 2500 MG PO
     Route: 048
     Dates: start: 20040701

REACTIONS (3)
  - MISCARRIAGE OF PARTNER [None]
  - PATERNAL DRUGS AFFECTING FOETUS [None]
  - PREGNANCY OF PARTNER [None]
